FAERS Safety Report 8156682-4 (Version None)
Quarter: 2012Q1

REPORT INFORMATION
  Report Type: 
  Country: None (occurrence: None)
  Receive Date: 20120222
  Receipt Date: 20120216
  Transmission Date: 20120608
  Serious: Yes (Other)
  Sender: FDA-Public Use
  Company Number: DE-B.I. PHARMACEUTICALS,INC./RIDGEFIELD-2012-BP-03230YA

PATIENT
  Age: 73 Year
  Sex: Male

DRUGS (3)
  1. RAMIPRIL [Suspect]
     Route: 065
  2. TAMSULOSIN HCL [Suspect]
     Route: 065
  3. INSPRA [Suspect]
     Dosage: 25 MG
     Route: 065
     Dates: start: 20120101

REACTIONS (2)
  - HYPERTENSIVE CRISIS [None]
  - DRUG INTERACTION [None]
